FAERS Safety Report 11586827 (Version 3)
Quarter: 2016Q3

REPORT INFORMATION
  Report Type: Report from Study
  Country: US (occurrence: US)
  Receive Date: 20151001
  Receipt Date: 20160817
  Transmission Date: 20161109
  Serious: No
  Sender: FDA-Public Use
  Company Number: US-AEGERION PHARMACEUTICAL INC.-AEGR001956

PATIENT
  Age: 67 Year
  Sex: Female
  Weight: 82.99 kg

DRUGS (1)
  1. JUXTAPID [Suspect]
     Active Substance: LOMITAPIDE MESYLATE
     Indication: TYPE IIA HYPERLIPIDAEMIA
     Dosage: 5 MG, QD
     Route: 048
     Dates: start: 20150727, end: 201605

REACTIONS (9)
  - Diarrhoea [Recovered/Resolved]
  - Therapy cessation [Unknown]
  - Abdominal pain upper [Not Recovered/Not Resolved]
  - Sinusitis [Not Recovered/Not Resolved]
  - Abdominal distension [Recovered/Resolved]
  - Flatulence [Recovered/Resolved]
  - Weight decreased [Unknown]
  - Nausea [Recovered/Resolved]
  - Asthenia [Not Recovered/Not Resolved]

NARRATIVE: CASE EVENT DATE: 20150727
